FAERS Safety Report 18646450 (Version 1)
Quarter: 2020Q4

REPORT INFORMATION
  Report Type: Other
  Country: None (occurrence: CN)
  Receive Date: 20201222
  Receipt Date: 20201222
  Transmission Date: 20210114
  Serious: Yes (Life-Threatening, Hospitalization)
  Sender: FDA-Public Use
  Company Number: CN-JIANGSU HENGRUI MEDICINE CO., LTD.-2103294

PATIENT
  Age: 56 Year
  Sex: Male

DRUGS (4)
  1. NIFEDIPINE CONTROLLED-RELEASE TABLETS [Concomitant]
     Dates: start: 20200904, end: 20200908
  2. CITICOLINE SODIUM TABLETS [Concomitant]
     Dates: start: 20200904, end: 20200908
  3. ATORVASTATIN CALCIUM TABLETS [Concomitant]
     Active Substance: ATORVASTATIN CALCIUM
     Dates: start: 20200904, end: 20200907
  4. GABAPENTIN. [Suspect]
     Active Substance: GABAPENTIN
     Indication: ANALGESIC THERAPY
     Route: 048
     Dates: start: 20200904, end: 20200908

REACTIONS (1)
  - Dermatitis exfoliative [Recovering/Resolving]

NARRATIVE: CASE EVENT DATE: 20200905
